FAERS Safety Report 8881847 (Version 1)
Quarter: 2012Q4

REPORT INFORMATION
  Report Type: 
  Country: US (occurrence: US)
  Receive Date: 20121101
  Receipt Date: 20121101
  Transmission Date: 20130627
  Serious: No
  Sender: FDA-Public Use
  Company Number: US-PFIZER INC-2012269202

PATIENT
  Sex: Male

DRUGS (4)
  1. GABAPENTIN [Suspect]
     Indication: NEUROPATHY
     Dosage: 600 mg-2400 mg, daily
  2. GABAPENTIN [Suspect]
     Indication: BIPOLAR DISORDER
  3. GABAPENTIN [Suspect]
     Indication: NECK INJURY
  4. GABAPENTIN [Suspect]
     Indication: MENTAL DISORDER

REACTIONS (7)
  - Drug level below therapeutic [Unknown]
  - Neuropathy peripheral [Unknown]
  - Pain in extremity [Unknown]
  - Insomnia [Unknown]
  - Discomfort [Unknown]
  - Pain [Unknown]
  - Off label use [Unknown]
